FAERS Safety Report 13433897 (Version 2)
Quarter: 2017Q2

REPORT INFORMATION
  Report Type: Report from Study
  Country: US (occurrence: BR)
  Receive Date: 20170413
  Receipt Date: 20170425
  Transmission Date: 20170830
  Serious: Yes (Hospitalization, Other)
  Sender: FDA-Public Use
  Company Number: US-SUNOVION-2017SUN001517

PATIENT
  Sex: Female
  Weight: 48 kg

DRUGS (7)
  1. INDACATEROL AND GLYCOPYRROLATE [Suspect]
     Active Substance: GLYCOPYRROLATE\INDACATEROL MALEATE
     Indication: RESPIRATORY FAILURE
  2. OXIMAX [Concomitant]
     Active Substance: MOMETASONE FUROATE
     Dosage: UNK
  3. LASIX [Concomitant]
     Active Substance: FUROSEMIDE
     Dosage: UNK
  4. ASPIRINA PREVENT [Concomitant]
     Active Substance: ASPIRIN
     Dosage: UNK
  5. INDACATEROL AND GLYCOPYRROLATE [Suspect]
     Active Substance: GLYCOPYRROLATE\INDACATEROL MALEATE
     Indication: PULMONARY OEDEMA
     Dosage: 1 DF (GLYCOPYRRONIUM 50 UG AND INDACATEROL 110 UG), QD
     Route: 055
     Dates: start: 201611
  6. INDACATEROL [Suspect]
     Active Substance: INDACATEROL
     Indication: LUNG DISORDER
     Dosage: 1 DF, UNK
     Route: 055
     Dates: start: 201611
  7. CARVEDIOL [Concomitant]
     Active Substance: CARVEDILOL
     Dosage: UNK

REACTIONS (5)
  - Oedema [Unknown]
  - Product use issue [Unknown]
  - Diverticulitis [Recovered/Resolved]
  - Idiopathic pulmonary fibrosis [Unknown]
  - Hypoacusis [Unknown]
